FAERS Safety Report 10028716 (Version 1)
Quarter: 2014Q1

REPORT INFORMATION
  Report Type: Other
  Country: PK (occurrence: PK)
  Receive Date: 20140321
  Receipt Date: 20140321
  Transmission Date: 20141002
  Serious: Yes (Other)
  Sender: FDA-Public Use
  Company Number: PK-BRISTOL-MYERS SQUIBB COMPANY-20542809

PATIENT
  Age: 51 Year
  Sex: Female

DRUGS (1)
  1. STREPTOMYCIN [Suspect]

REACTIONS (1)
  - Jaundice [Recovering/Resolving]
